FAERS Safety Report 7292936-1 (Version None)
Quarter: 2011Q1

REPORT INFORMATION
  Report Type: 
  Country: None (occurrence: None)
  Receive Date: 20110204
  Receipt Date: 20110127
  Transmission Date: 20110831
  Serious: No
  Sender: FDA-Public Use
  Company Number: C-11-004

PATIENT
  Age: 25 Year
  Sex: Female

DRUGS (1)
  1. PHENDIMETRAZINE TARTRATE [Suspect]
     Indication: WEIGHT DECREASED
     Dosage: ORAL, 2-3 TIMES A DAY
     Route: 048

REACTIONS (4)
  - TABLET PHYSICAL ISSUE [None]
  - WEIGHT INCREASED [None]
  - DRUG INEFFECTIVE [None]
  - HUNGER [None]
